FAERS Safety Report 21696957 (Version 3)
Quarter: 2022Q4

REPORT INFORMATION
  Report Type: Report from Study
  Country: DE (occurrence: DE)
  Receive Date: 20221208
  Receipt Date: 20221226
  Transmission Date: 20230112
  Serious: Yes (Other)
  Sender: FDA-Public Use
  Company Number: DE-002147023-NVSC2021DE248419

PATIENT
  Sex: Male

DRUGS (2)
  1. DABRAFENIB [Suspect]
     Active Substance: DABRAFENIB
     Indication: Neuroblastoma
     Dosage: 5.2 MG/KG, QD
     Route: 048
     Dates: start: 20210519, end: 20220210
  2. TRAMETINIB [Suspect]
     Active Substance: TRAMETINIB
     Indication: Neuroblastoma
     Dosage: 0.03 MG/KG, QD (0.032 MG/KG, QD)
     Route: 048
     Dates: start: 20210519, end: 20220210

REACTIONS (4)
  - Diarrhoea [Unknown]
  - Neuroblastoma [Unknown]
  - Malignant neoplasm progression [Unknown]
  - Product use in unapproved indication [Unknown]

NARRATIVE: CASE EVENT DATE: 20210519
